FAERS Safety Report 8212131-9 (Version None)
Quarter: 2012Q1

REPORT INFORMATION
  Report Type: 
  Country: None (occurrence: None)
  Receive Date: 20120315
  Receipt Date: 20120308
  Transmission Date: 20120608
  Serious: Yes (Hospitalization)
  Sender: FDA-Public Use
  Company Number: SE-ROCHE-1046733

PATIENT
  Sex: Male

DRUGS (5)
  1. DAUNORUBICIN HCL [Concomitant]
     Indication: LYMPHOMA
     Dates: start: 20120101
  2. CYCLOPHOSPHAMIDE [Concomitant]
     Indication: LYMPHOMA
     Dates: start: 20120101
  3. MABTHERA [Suspect]
     Indication: LYMPHOMA
     Dates: start: 20120101
  4. ONCOVIN [Concomitant]
     Indication: LYMPHOMA
     Dates: start: 20120101
  5. PREDNISONE TAB [Concomitant]
     Indication: LYMPHOMA
     Dates: start: 20120101

REACTIONS (1)
  - PROGRESSIVE MULTIFOCAL LEUKOENCEPHALOPATHY [None]
